FAERS Safety Report 5168014-4 (Version None)
Quarter: 2006Q4

REPORT INFORMATION
  Report Type: 
  Country: None (occurrence: None)
  Receive Date: 20061208
  Receipt Date: 20060210
  Transmission Date: 20070319
  Serious: No
  Sender: FDA-Public Use
  Company Number: US-GLAXOSMITHKLINE-A0593292A

PATIENT
  Age: 67 Year
  Sex: Female

DRUGS (3)
  1. AVANDAMET [Suspect]
     Route: 048
  2. GLUCOPHAGE [Concomitant]
  3. GLUCOPHAGE XR [Concomitant]

REACTIONS (1)
  - DIARRHOEA [None]
